FAERS Safety Report 9889759 (Version 2)
Quarter: 2014Q1

REPORT INFORMATION
  Report Type: Spontaneous
  Country: US (occurrence: US)
  Receive Date: 20140211
  Receipt Date: 20140312
  Transmission Date: 20141002
  Serious: Yes (Other)
  Sender: FDA-Public Use
  Company Number: US-AMGEN-USASP2014009123

PATIENT
  Age: 64 Year
  Sex: Male
  Weight: 65.5 kg

DRUGS (1)
  1. EPOGEN [Suspect]
     Indication: ANAEMIA
     Dosage: 15000 UNIT, 3 TIMES/WK
     Route: 065
     Dates: start: 2010

REACTIONS (6)
  - Therapeutic response decreased [Not Recovered/Not Resolved]
  - Haemoglobin abnormal [Unknown]
  - Decreased appetite [Unknown]
  - Asthenia [Unknown]
  - Arteriosclerosis [Unknown]
  - Fatigue [Unknown]
